FAERS Safety Report 13905200 (Version 1)
Quarter: 2017Q3

REPORT INFORMATION
  Report Type: Report from Study
  Country: None (occurrence: US)
  Receive Date: 20170825
  Receipt Date: 20170825
  Transmission Date: 20171127
  Serious: Yes (Death, Other)
  Sender: FDA-Public Use
  Company Number: US-ABBVIE-17K-163-2079875-00

PATIENT
  Sex: Female

DRUGS (1)
  1. HUMIRA [Suspect]
     Active Substance: ADALIMUMAB
     Indication: MATERNAL EXPOSURE TIMING UNSPECIFIED
     Route: 064

REACTIONS (5)
  - Premature baby [Unknown]
  - Foetal distress syndrome [Recovered/Resolved]
  - Pericardial effusion [Fatal]
  - Neonatal cardiac failure [Fatal]
  - Pulmonary oedema neonatal [Fatal]

NARRATIVE: CASE EVENT DATE: 20151215
